FAERS Safety Report 9971297 (Version 1)
Quarter: 2014Q1

REPORT INFORMATION
  Report Type: Report from Study
  Country: PR (occurrence: PR)
  Receive Date: 20140306
  Receipt Date: 20140306
  Transmission Date: 20141002
  Serious: Yes (Other)
  Sender: FDA-Public Use
  Company Number: PR-ABBVIE-13P-131-1153903-00

PATIENT
  Age: 42 Year
  Sex: Female
  Weight: 79.45 kg

DRUGS (6)
  1. HUMIRA [Suspect]
     Indication: RHEUMATOID ARTHRITIS
     Route: 058
     Dates: start: 201303, end: 20130916
  2. METHOTREXATE [Concomitant]
     Indication: RHEUMATOID ARTHRITIS
     Route: 048
  3. ENALAPRIL [Concomitant]
     Indication: HYPERTENSION
     Route: 048
  4. RELAFEN [Concomitant]
     Indication: MUSCLE RELAXANT THERAPY
     Route: 048
  5. UNKNOWN MEDICATION [Concomitant]
     Indication: SINUSITIS
     Route: 048
  6. UNKNOWN MEDICATION [Concomitant]
     Indication: MIGRAINE
     Route: 048

REACTIONS (6)
  - Dehydration [Recovered/Resolved]
  - Influenza [Recovering/Resolving]
  - Cough [Recovering/Resolving]
  - Pyrexia [Recovered/Resolved]
  - Weight decreased [Recovered/Resolved]
  - Diarrhoea [Recovered/Resolved]
